FAERS Safety Report 4588810-1 (Version None)
Quarter: 2005Q1

REPORT INFORMATION
  Report Type: 
  Country: None (occurrence: None)
  Receive Date: 20050222
  Receipt Date: 20050210
  Transmission Date: 20050727
  Serious: Yes (Hospitalization)
  Sender: FDA-Public Use
  Company Number: NL-JNJFOC-20050202868

PATIENT
  Sex: Female

DRUGS (1)
  1. DAKTACORT [Suspect]
     Indication: TINEA PEDIS
     Route: 065
     Dates: start: 20041228, end: 20041230

REACTIONS (3)
  - EAR PAIN [None]
  - ORAL MUCOSAL BLISTERING [None]
  - PHARYNGOLARYNGEAL PAIN [None]
